FAERS Safety Report 8978125 (Version 2)
Quarter: 2013Q1

REPORT INFORMATION
  Report Type: Spontaneous
  Country: US (occurrence: US)
  Receive Date: 20121221
  Receipt Date: 20130114
  Transmission Date: 20140127
  Serious: Yes (Other)
  Sender: FDA-Public Use
  Company Number: US-BAYER-2012-133882

PATIENT
  Age: 39 Year
  Sex: Female

DRUGS (1)
  1. MIRENA [Suspect]
     Indication: CONTRACEPTION
     Dosage: 20 MCG/24HR, CONT
     Route: 015
     Dates: start: 20121126, end: 20121210

REACTIONS (6)
  - Procedural pain [None]
  - Abdominal discomfort [None]
  - Malaise [None]
  - Genital haemorrhage [None]
  - Abdominal pain lower [Recovered/Resolved]
  - Post procedural haemorrhage [None]
